FAERS Safety Report 5062930-X (Version None)
Quarter: 2006Q3

REPORT INFORMATION
  Report Type: 
  Country: None (occurrence: None)
  Receive Date: 20060724
  Receipt Date: 20060717
  Transmission Date: 20061208
  Serious: Yes (Hospitalization)
  Sender: FDA-Public Use
  Company Number: 2006087897

PATIENT
  Age: 76 Year
  Sex: Female
  Weight: 77 kg

DRUGS (18)
  1. NITROGLYCERIN [Suspect]
     Indication: ESSENTIAL HYPERTENSION
     Dosage: 10 MG (10 MG, 1 IN 1 D), TRANSDERMAL
     Route: 062
     Dates: start: 20060324, end: 20060326
  2. NITROGLYCERIN [Suspect]
     Indication: ESSENTIAL HYPERTENSION
     Dosage: 10 MG (10 MG, 1 IN 1 D), TRANSDERMAL
     Route: 062
     Dates: start: 20060405, end: 20060429
  3. DILTIAZEM [Suspect]
     Indication: ESSENTIAL HYPERTENSION
     Dosage: 240 MG (120 MG, 2 IN 1 D), ORAL
     Route: 048
     Dates: start: 20060331
  4. NITROGLYCERIN [Suspect]
     Indication: ESSENTIAL HYPERTENSION
     Dosage: SEE IMAGE
     Route: 042
     Dates: start: 20060327, end: 20060328
  5. NITROGLYCERIN [Suspect]
     Indication: ESSENTIAL HYPERTENSION
     Dosage: SEE IMAGE
     Route: 042
     Dates: start: 20060329, end: 20060329
  6. TRAMADOL HCL [Suspect]
     Indication: PAIN
     Dosage: SEE IMAGE
     Route: 048
     Dates: start: 20060324, end: 20060324
  7. TRAMADOL HCL [Suspect]
     Indication: PAIN
     Dosage: SEE IMAGE
     Route: 048
     Dates: start: 20060325, end: 20060325
  8. TRAMADOL HCL [Suspect]
     Indication: PAIN
     Dosage: SEE IMAGE
     Route: 048
     Dates: start: 20060326, end: 20060326
  9. TRAMADOL HCL [Suspect]
     Indication: PAIN
     Dosage: SEE IMAGE
     Route: 048
     Dates: start: 20060327, end: 20060406
  10. MYSOLINE [Suspect]
     Indication: EPILEPSY
     Dosage: 750 MG (250 MG, 3 IN 1 D), ORAL
     Route: 048
  11. VITARUBIN (CYANOCOBALAMIN) [Concomitant]
  12. VALPROIC ACID [Concomitant]
  13. OXAZEPAM [Concomitant]
  14. ACETAMINOPHEN [Concomitant]
  15. COVERSUM COMBI (INDAPAMIDE, PERINDOPRIL) [Concomitant]
  16. LORAZEPAM [Concomitant]
  17. PHYSIOTENS (MOXONIDINE) [Concomitant]
  18. VENTOLIN [Concomitant]

REACTIONS (3)
  - CONDITION AGGRAVATED [None]
  - DRUG INTERACTION [None]
  - HYPERTENSION [None]
